FAERS Safety Report 5604016-9 (Version None)
Quarter: 2008Q1

REPORT INFORMATION
  Report Type: 
  Country: None (occurrence: None)
  Receive Date: 20080128
  Receipt Date: 20080118
  Transmission Date: 20080703
  Serious: Yes (Other)
  Sender: FDA-Public Use
  Company Number: PHBS2008IT01103

PATIENT
  Age: 47 Year
  Sex: Male

DRUGS (2)
  1. CYCLOSPORINE [Suspect]
     Indication: ALLOGENIC BONE MARROW TRANSPLANTATION THERAPY
     Dosage: 200 MG/D
     Route: 065
  2. PREDNISONE [Suspect]
     Indication: ALLOGENIC BONE MARROW TRANSPLANTATION THERAPY
     Dosage: 7.5 MG/D
     Route: 065

REACTIONS (4)
  - BUCCAL CAVITY PAPILLOMA [None]
  - CAT SCRATCH DISEASE [None]
  - LESION EXCISION [None]
  - PYREXIA [None]
